FAERS Safety Report 24283865 (Version 1)
Quarter: 2024Q3

REPORT INFORMATION
  Report Type: Spontaneous
  Country: GT (occurrence: GT)
  Receive Date: 20240905
  Receipt Date: 20240905
  Transmission Date: 20241016
  Serious: Yes (Hospitalization, Other)
  Sender: NOVITIUM PHARMA
  Company Number: GT-NOVITIUMPHARMA-2024GTNVP01772

PATIENT
  Age: 21 Year
  Sex: Male

DRUGS (1)
  1. PREDNISONE [Suspect]
     Active Substance: PREDNISONE
     Indication: Adrenocortical steroid therapy

REACTIONS (2)
  - Drug dependence [Unknown]
  - Osteonecrosis [Unknown]
